FAERS Safety Report 9098564 (Version 1)
Quarter: 2013Q1

REPORT INFORMATION
  Report Type: Spontaneous
  Country: US (occurrence: US)
  Receive Date: 20130213
  Receipt Date: 20130213
  Transmission Date: 20140127
  Serious: Yes (Death, Other)
  Sender: FDA-Public Use
  Company Number: US-ELI_LILLY_AND_COMPANY-US201302001696

PATIENT
  Age: 60 Year
  Sex: Female

DRUGS (13)
  1. FLUOXETINE HYDROCHLORIDE [Suspect]
  2. TIZANIDINE [Concomitant]
  3. AMLODIPINE [Concomitant]
  4. ARIPIPRAZOLE [Concomitant]
  5. HYDROCODONE [Concomitant]
  6. OXYCODONE [Concomitant]
  7. AMITRIPTYLINE [Concomitant]
  8. ZOLPIDEM [Concomitant]
  9. HYOSCYAMINE [Concomitant]
  10. HYDROCHLOROTHIAZIDE [Concomitant]
  11. SIMVASTATIN [Concomitant]
  12. SUMATRIPTAN [Concomitant]
  13. ACETAMINOPHEN [Concomitant]

REACTIONS (2)
  - Completed suicide [Fatal]
  - Cardio-respiratory arrest [Fatal]
